FAERS Safety Report 7370338-7 (Version None)
Quarter: 2011Q1

REPORT INFORMATION
  Report Type: 
  Country: None (occurrence: None)
  Receive Date: 20110323
  Receipt Date: 20110318
  Transmission Date: 20110831
  Serious: Yes (Other)
  Sender: FDA-Public Use
  Company Number: JP-PFIZER INC-2011037094

PATIENT
  Age: 96 Year
  Sex: Male

DRUGS (1)
  1. UNASYN [Suspect]
     Indication: PNEUMONIA
     Dosage: 6 G, DAILY
     Route: 041
     Dates: start: 20110115, end: 20110119

REACTIONS (1)
  - HAEMOLYTIC ANAEMIA [None]
